FAERS Safety Report 10345556 (Version 3)
Quarter: 2014Q4

REPORT INFORMATION
  Report Type: Spontaneous
  Country: IT (occurrence: IT)
  Receive Date: 20140728
  Receipt Date: 20141006
  Transmission Date: 20150528
  Serious: Yes (Hospitalization, Other)
  Sender: FDA-Public Use
  Company Number: IT-PFIZER INC-2014208131

PATIENT
  Age: 40 Year
  Sex: Female

DRUGS (8)
  1. MORPHINE SULFATE. [Interacting]
     Active Substance: MORPHINE SULFATE
     Indication: PAIN
     Dosage: 10 MG, DAILY
     Route: 042
     Dates: start: 20140529
  2. DUROGESIC [Interacting]
     Active Substance: FENTANYL
     Indication: PAIN
     Dosage: 50 UG, DAILY
     Route: 062
     Dates: start: 20140526
  3. LYRICA [Suspect]
     Active Substance: PREGABALIN
     Indication: PAIN
     Dosage: 150 MG, DAILY
     Route: 048
     Dates: start: 20140529
  4. UROMITEXAN [Concomitant]
     Active Substance: MESNA
     Indication: SARCOMA
     Dosage: 5000 MG, UNK
     Route: 042
     Dates: start: 20130530, end: 20140604
  5. SOLDESAM [Concomitant]
     Active Substance: DEXAMETHASONE
     Indication: PREMEDICATION
     Dosage: 8 MG, UNK
     Route: 042
     Dates: start: 20140530, end: 20140602
  6. KYTRIL [Concomitant]
     Active Substance: GRANISETRON HYDROCHLORIDE
     Indication: PREMEDICATION
     Dosage: 3 MG, UNK
     Route: 042
     Dates: start: 20140530, end: 20140602
  7. HOLOXAN [Interacting]
     Active Substance: IFOSFAMIDE
     Indication: SARCOMA
     Dosage: 5000 MG, DAILY
     Route: 042
     Dates: start: 20140530, end: 20140601
  8. RANITIDINE [Concomitant]
     Active Substance: RANITIDINE\RANITIDINE HYDROCHLORIDE
     Indication: PREMEDICATION
     Dosage: 100 MG, UNK
     Route: 042
     Dates: start: 20140530, end: 20140602

REACTIONS (6)
  - Sopor [Recovered/Resolved]
  - Pyrexia [Unknown]
  - Drug interaction [Unknown]
  - Feeling abnormal [Recovered/Resolved]
  - Cognitive disorder [Recovered/Resolved]
  - Myoclonus [Recovered/Resolved]

NARRATIVE: CASE EVENT DATE: 20140531
